FAERS Safety Report 5205982-6 (Version None)
Quarter: 2007Q1

REPORT INFORMATION
  Report Type: 
  Country: None (occurrence: None)
  Receive Date: 20070111
  Receipt Date: 20070104
  Transmission Date: 20070707
  Serious: Yes (Hospitalization)
  Sender: FDA-Public Use
  Company Number: US-JNJFOC-20050401316

PATIENT
  Sex: Female
  Weight: 111.59 kg

DRUGS (11)
  1. DURAGESIC-100 [Suspect]
     Route: 062
  2. DURAGESIC-100 [Suspect]
     Route: 062
  3. DURAGESIC-100 [Suspect]
     Route: 062
  4. DURAGESIC-100 [Suspect]
     Route: 062
  5. DURAGESIC-100 [Suspect]
     Route: 062
  6. DURAGESIC-100 [Suspect]
     Route: 062
  7. DURAGESIC-100 [Suspect]
     Route: 062
  8. DURAGESIC-100 [Suspect]
     Route: 062
  9. DURAGESIC-100 [Suspect]
     Route: 062
  10. DURAGESIC-100 [Suspect]
     Indication: PAIN
     Route: 062
  11. PERCOCET [Concomitant]
     Indication: BREAKTHROUGH PAIN

REACTIONS (16)
  - ANKLE FRACTURE [None]
  - ANXIETY [None]
  - CONTUSION [None]
  - DEPRESSION [None]
  - FALL [None]
  - FIBULA FRACTURE [None]
  - HYPERSOMNIA [None]
  - INJURY [None]
  - JOINT INJURY [None]
  - NECROSIS [None]
  - ROAD TRAFFIC ACCIDENT [None]
  - SKIN GRAFT [None]
  - SLEEP ATTACKS [None]
  - STAPHYLOCOCCAL INFECTION [None]
  - STRESS [None]
  - TIBIA FRACTURE [None]
